FAERS Safety Report 17854488 (Version 1)
Quarter: 2020Q2

REPORT INFORMATION
  Report Type: Spontaneous
  Country: US (occurrence: US)
  Receive Date: 20200603
  Receipt Date: 20200603
  Transmission Date: 20200714
  Serious: Yes (Other)
  Sender: FDA-Public Use
  Company Number: US-SA-2020SA140312

PATIENT

DRUGS (1)
  1. ADMELOG [Suspect]
     Active Substance: INSULIN LISPRO
     Indication: TYPE 1 DIABETES MELLITUS
     Dosage: PATIENT?S DOSE VARIES DEPENDING ON HIS BLOOD SUGARS WHICH HE CHECKS EVERY 2 HOURS
     Route: 065

REACTIONS (1)
  - Diabetes mellitus inadequate control [Unknown]
